FAERS Safety Report 4590526-2 (Version None)
Quarter: 2005Q1

REPORT INFORMATION
  Report Type: 
  Country: None (occurrence: None)
  Receive Date: 20050224
  Receipt Date: 20040805
  Transmission Date: 20050727
  Serious: Yes (Hospitalization)
  Sender: FDA-Public Use
  Company Number: FR-ROCHE-377399

PATIENT
  Age: 50 Year
  Sex: Female

DRUGS (1)
  1. XENICAL [Suspect]
     Indication: OBESITY
     Route: 048
     Dates: start: 20040615, end: 20040801

REACTIONS (5)
  - GNATHOSTOMIASIS [None]
  - HYPEREOSINOPHILIC SYNDROME [None]
  - OEDEMA [None]
  - PLEURAL EFFUSION [None]
  - TRANSAMINASES INCREASED [None]
